FAERS Safety Report 10425164 (Version 1)
Quarter: 2014Q3

REPORT INFORMATION
  Report Type: Spontaneous
  Country: US (occurrence: US)
  Receive Date: 20140902
  Receipt Date: 20140902
  Transmission Date: 20150326
  Serious: No
  Sender: FDA-Public Use
  Company Number: US-FRI-1000070322

PATIENT
  Age: 38 Year
  Sex: Male
  Weight: 84 kg

DRUGS (2)
  1. SAPHRIS [Suspect]
     Active Substance: ASENAPINE MALEATE
     Indication: SCHIZOPHRENIA
  2. SAPHRIS [Suspect]
     Active Substance: ASENAPINE MALEATE
     Indication: HALLUCINATION, AUDITORY

REACTIONS (9)
  - Hallucination, auditory [Not Recovered/Not Resolved]
  - Loss of consciousness [Not Recovered/Not Resolved]
  - Gait disturbance [Not Recovered/Not Resolved]
  - Poisoning [Not Recovered/Not Resolved]
  - Dysphagia [Not Recovered/Not Resolved]
  - Memory impairment [Not Recovered/Not Resolved]
  - Movement disorder [Not Recovered/Not Resolved]
  - Speech disorder [Not Recovered/Not Resolved]
  - Off label use [Unknown]

NARRATIVE: CASE EVENT DATE: 20110224
